FAERS Safety Report 10728010 (Version 4)
Quarter: 2016Q1

REPORT INFORMATION
  Report Type: Spontaneous
  Country: US (occurrence: US)
  Receive Date: 20150121
  Receipt Date: 20160205
  Transmission Date: 20160525
  Serious: Yes (Hospitalization, Other)
  Sender: FDA-Public Use
  Company Number: US-GLAXOSMITHKLINE-US2014GSK047676

PATIENT
  Age: 89 Year
  Sex: Female
  Weight: 102 kg

DRUGS (18)
  1. VITAMIN C [Concomitant]
     Active Substance: ASCORBIC ACID
  2. COREG CR [Suspect]
     Active Substance: CARVEDILOL PHOSPHATE
     Dosage: 40 MG
     Route: 048
  3. CENTRUM CARDIO [Concomitant]
     Active Substance: VITAMINS
  4. ASPIRIN. [Concomitant]
     Active Substance: ASPIRIN
  5. LOVASTATIN. [Concomitant]
     Active Substance: LOVASTATIN
  6. ZOLOFT [Concomitant]
     Active Substance: SERTRALINE HYDROCHLORIDE
  7. COREG CR [Suspect]
     Active Substance: CARVEDILOL PHOSPHATE
     Indication: CARDIAC FAILURE CONGESTIVE
     Dosage: 80 MG
     Route: 048
     Dates: start: 200711
  8. LOSARTIN [Concomitant]
     Active Substance: LOSARTAN
  9. LUMIGAN [Concomitant]
     Active Substance: BIMATOPROST
  10. ALDACTONE [Concomitant]
     Active Substance: SPIRONOLACTONE
  11. IMDUR [Concomitant]
     Active Substance: ISOSORBIDE MONONITRATE
  12. OMEGA FISH OIL [Concomitant]
     Active Substance: FISH OIL\OMEGA-3 FATTY ACIDS
  13. WARFARIN [Concomitant]
     Active Substance: WARFARIN
  14. COREG CR [Suspect]
     Active Substance: CARVEDILOL PHOSPHATE
     Indication: CARDIAC DISORDER
     Dosage: 40 MG, QD
     Route: 048
     Dates: start: 20140815
  15. LASIX [Suspect]
     Active Substance: FUROSEMIDE
     Indication: PRODUCT USED FOR UNKNOWN INDICATION
     Dosage: UNK
     Dates: end: 2015
  16. HYDROXYUREA. [Concomitant]
     Active Substance: HYDROXYUREA
  17. PRILOSEC [Concomitant]
     Active Substance: OMEPRAZOLE MAGNESIUM
  18. VITAMIN E [Concomitant]
     Active Substance: .ALPHA.-TOCOPHEROL

REACTIONS (24)
  - Cataract operation [Unknown]
  - Malaise [Not Recovered/Not Resolved]
  - Peroneal nerve palsy [Not Recovered/Not Resolved]
  - Neoplasm malignant [Not Recovered/Not Resolved]
  - Vomiting [Unknown]
  - Swelling [Unknown]
  - Decreased appetite [Unknown]
  - Blood sodium decreased [Unknown]
  - Haematological malignancy [Unknown]
  - Arrhythmia [Not Recovered/Not Resolved]
  - Blood test abnormal [Not Recovered/Not Resolved]
  - Head injury [Unknown]
  - Impaired healing [Not Recovered/Not Resolved]
  - Dysgeusia [Unknown]
  - Contusion [Unknown]
  - Haemorrhage [Unknown]
  - Ulcer [Not Recovered/Not Resolved]
  - Dyspnoea [Unknown]
  - Gastrointestinal haemorrhage [Unknown]
  - Fatigue [Not Recovered/Not Resolved]
  - Weight decreased [Unknown]
  - Abdominal distension [Unknown]
  - Visual impairment [Not Recovered/Not Resolved]
  - Fall [Recovering/Resolving]

NARRATIVE: CASE EVENT DATE: 2014
